FAERS Safety Report 19151842 (Version 2)
Quarter: 2022Q2

REPORT INFORMATION
  Report Type: Spontaneous
  Country: AU (occurrence: AU)
  Receive Date: 20210419
  Receipt Date: 20220623
  Transmission Date: 20220721
  Serious: Yes (Life-Threatening, Hospitalization, Other)
  Sender: FDA-Public Use
  Company Number: AU-MACLEODS PHARMACEUTICALS US LTD-MAC2021030811

PATIENT

DRUGS (22)
  1. DULOXETINE [Suspect]
     Active Substance: DULOXETINE
     Indication: Depression
     Dosage: 60 MILLIGRAM, QD
     Route: 065
  2. EPINEPHRINE [Suspect]
     Active Substance: EPINEPHRINE
     Indication: Infiltration anaesthesia
     Dosage: 25 MICROGRAM, FOUR ALIQUOTS OF EPINEPHRINE INTRAVENOUSLY 25?50 ?G WERE ADMINISTERED
     Route: 042
  3. EPINEPHRINE [Suspect]
     Active Substance: EPINEPHRINE
     Dosage: UNK, INTERMITTENT BOLUSES OF EPINEPHRINE
     Route: 042
  4. EPINEPHRINE [Suspect]
     Active Substance: EPINEPHRINE
     Dosage: 15 MILLILITER, INJECTION 1:100 000
     Route: 065
  5. EPINEPHRINE [Suspect]
     Active Substance: EPINEPHRINE
     Dosage: 50 MICROGRAM, FOUR ALIQUOTS OF EPINEPHRINE INTRAVENOUSLY 25?50 ?G WERE ADMINISTERED
     Route: 042
  6. EPINEPHRINE [Suspect]
     Active Substance: EPINEPHRINE
     Dosage: 0.2 MICROGRAM/KILOGRAM, INFUSION
     Route: 065
  7. EPINEPHRINE [Suspect]
     Active Substance: EPINEPHRINE
     Dosage: 0.3 MICROGRAM/KILOGRAM, INFUSION
     Route: 065
  8. NOREPINEPHRINE [Suspect]
     Active Substance: NOREPINEPHRINE
     Indication: Product used for unknown indication
     Dosage: 0.2 MICROGRAM/KILOGRAM, INFUSION
     Route: 065
  9. NOREPINEPHRINE [Suspect]
     Active Substance: NOREPINEPHRINE
     Dosage: 0.3 MICROGRAM/KILOGRAM, INFUSION
     Route: 065
  10. THYROXINE [Concomitant]
     Active Substance: LEVOTHYROXINE
     Indication: Hypothyroidism
     Dosage: 100 MICROGRAM, QD
     Route: 065
  11. AMOXICILLIN [Concomitant]
     Active Substance: AMOXICILLIN
     Indication: Product used for unknown indication
     Dosage: UNK
     Route: 065
  12. ATROPINE [Concomitant]
     Active Substance: ATROPINE
     Indication: Product used for unknown indication
     Dosage: 600 MICROGRAM
     Route: 042
  13. OXYGEN [Concomitant]
     Active Substance: OXYGEN
     Indication: Product used for unknown indication
     Dosage: 6 LITER, 1 MIN, HUDSON-TYPE FACEMASK
     Route: 055
  14. ONDANSETRON [Concomitant]
     Active Substance: ONDANSETRON
     Indication: Product used for unknown indication
     Dosage: 4 MILLIGRAM
     Route: 042
  15. LIDOCAINE [Concomitant]
     Active Substance: LIDOCAINE
     Indication: Product used for unknown indication
     Dosage: 15 MILLILITER, INJECTION
     Route: 065
  16. LIDOCAINE [Concomitant]
     Active Substance: LIDOCAINE
     Indication: Induction of anaesthesia
     Dosage: 10 MILLIGRAM
     Route: 042
  17. PREDNISOLONE [Concomitant]
     Active Substance: PREDNISOLONE
     Indication: Autoimmune hepatitis
     Dosage: 5 MILLIGRAM, QD
     Route: 065
  18. PROPOFOL [Concomitant]
     Active Substance: PROPOFOL
     Indication: Sedation
     Dosage: 50 MILLIGRAM
     Route: 065
  19. PROPOFOL [Concomitant]
     Active Substance: PROPOFOL
     Dosage: 50 MILLIGRAM, SECOND DOSE
     Route: 042
  20. FENTANYL [Concomitant]
     Active Substance: FENTANYL
     Indication: Product used for unknown indication
     Dosage: 75 MICROGRAM
     Route: 042
  21. LIDOCAINE HYDROCHLORIDE [Concomitant]
     Active Substance: LIDOCAINE HYDROCHLORIDE
     Indication: Product used for unknown indication
     Dosage: 10 MILLIGRAM
     Route: 042
  22. 1% Lignocaine [Concomitant]
     Indication: Product used for unknown indication
     Dosage: 15 MILLILITER
     Route: 065

REACTIONS (4)
  - Metabolic acidosis [Recovered/Resolved]
  - Hypokalaemia [Recovered/Resolved]
  - Cardiac arrest [Recovered/Resolved]
  - Stress cardiomyopathy [Recovered/Resolved]
